FAERS Safety Report 4427837-7 (Version None)
Quarter: 2004Q3

REPORT INFORMATION
  Report Type: 
  Country: None (occurrence: None)
  Receive Date: 20040817
  Receipt Date: 20040811
  Transmission Date: 20050211
  Serious: Yes (Hospitalization)
  Sender: FDA-Public Use
  Company Number: US-BRISTOL-MYERS SQUIBB COMPANY-12668299

PATIENT
  Age: 66 Year
  Sex: Male
  Weight: 88 kg

DRUGS (6)
  1. GLUCOPHAGE [Suspect]
     Indication: DIABETES MELLITUS NON-INSULIN-DEPENDENT
     Route: 048
  2. GLYBURIDE [Concomitant]
     Dosage: 8 TO 10 YEARS
  3. AVANDIA [Concomitant]
     Dosage: DURATION: LESS THAN ONE YEAR
  4. ZESTRIL [Concomitant]
     Dosage: 15 TO 20 YEARS
  5. CENTRUM [Concomitant]
  6. COENZYME Q10 [Concomitant]

REACTIONS (2)
  - BACTERAEMIA [None]
  - OSTEOMYELITIS [None]
